FAERS Safety Report 16161007 (Version 1)
Quarter: 2019Q2

REPORT INFORMATION
  Report Type: Spontaneous
  Country: ES (occurrence: ES)
  Receive Date: 20190405
  Receipt Date: 20190405
  Transmission Date: 20190711
  Serious: Yes (Death, Hospitalization)
  Sender: FDA-Public Use
  Company Number: ES-SUN PHARMACEUTICAL INDUSTRIES LTD-2019RR-204200

PATIENT
  Age: 88 Year
  Sex: Female

DRUGS (4)
  1. MACROGOL (2768A) [Suspect]
     Active Substance: POLYETHYLENE GLYCOLS
     Indication: PRODUCT USED FOR UNKNOWN INDICATION
     Dosage: 1-1-1 ()
     Route: 048
     Dates: start: 201805, end: 20180521
  2. GOMA XANTANA (8635A) [Suspect]
     Active Substance: XANTHAN GUM
     Indication: PRODUCT USED FOR UNKNOWN INDICATION
     Dosage: 1-1-1-1 ()
     Route: 048
     Dates: start: 201805, end: 20180521
  3. OMEPRAZOLE. [Suspect]
     Active Substance: OMEPRAZOLE
     Indication: OESOPHAGITIS
     Dosage: 20 MILLIGRAM, DAILY
     Route: 048
     Dates: start: 20160822, end: 20180521
  4. SALBUTAMOL (2297A) [Suspect]
     Active Substance: ALBUTEROL
     Indication: PRODUCT USED FOR UNKNOWN INDICATION
     Dosage: 2-2-2-2 ()
     Route: 055
     Dates: start: 201805, end: 20180521

REACTIONS (2)
  - Hypokalaemia [Recovered/Resolved]
  - Confusional state [Not Recovered/Not Resolved]

NARRATIVE: CASE EVENT DATE: 20180515
